FAERS Safety Report 9503976 (Version 1)
Quarter: 2013Q3

REPORT INFORMATION
  Report Type: Spontaneous
  Country: US (occurrence: None)
  Receive Date: 20130905
  Receipt Date: 20130905
  Transmission Date: 20140515
  Serious: No
  Sender: FDA-Public Use
  Company Number: None

PATIENT
  Age: 61 Year
  Sex: Female
  Weight: 97.52 kg

DRUGS (1)
  1. PENNSAID [Suspect]
     Indication: ARTHRALGIA
     Dosage: 40 DROPS  4 TIMES A DAY  ON THE SKIN
     Route: 061
     Dates: start: 20130813, end: 20130816

REACTIONS (2)
  - Arthralgia [None]
  - Pain [None]
